FAERS Safety Report 16499423 (Version 3)
Quarter: 2019Q3

REPORT INFORMATION
  Report Type: Report from Study
  Country: None (occurrence: AR)
  Receive Date: 20190701
  Receipt Date: 20190930
  Transmission Date: 20191004
  Serious: Yes (Other)
  Sender: FDA-Public Use
  Company Number: AR-ABBVIE-19K-007-2837568-00

PATIENT
  Age: 60 Year
  Sex: Male

DRUGS (1)
  1. HUMIRA [Suspect]
     Active Substance: ADALIMUMAB
     Indication: PSORIASIS
     Route: 058
     Dates: start: 20170815, end: 20190528

REACTIONS (8)
  - Stress [Unknown]
  - Drug ineffective [Not Recovered/Not Resolved]
  - Skin atrophy [Unknown]
  - Psoriasis [Recovered/Resolved]
  - Acquired phimosis [Unknown]
  - Psoriasis [Not Recovered/Not Resolved]
  - Skin laceration [Unknown]
  - Fungal skin infection [Unknown]

NARRATIVE: CASE EVENT DATE: 2018
